FAERS Safety Report 7897709-4 (Version None)
Quarter: 2011Q4

REPORT INFORMATION
  Report Type: 
  Country: None (occurrence: None)
  Receive Date: 20111107
  Receipt Date: 20111031
  Transmission Date: 20120403
  Serious: Yes (Hospitalization, Other)
  Sender: FDA-Public Use
  Company Number: US-AMGEN-KDL206083

PATIENT
  Age: 54 Year
  Sex: Female

DRUGS (6)
  1. TREXALL [Concomitant]
     Dosage: 3 MG, QWK
     Dates: start: 20110925
  2. FOLIC ACID [Concomitant]
     Dosage: 1 MG, UNK
  3. ENBREL [Suspect]
     Indication: RHEUMATOID ARTHRITIS
     Dosage: 50 MG, QWK
     Route: 058
     Dates: start: 20000601
  4. ENBREL [Suspect]
  5. SYNTHROID [Concomitant]
     Dosage: UNK
  6. ZOLOFT [Concomitant]
     Dosage: UNK

REACTIONS (11)
  - RHEUMATOID ARTHRITIS [None]
  - INJECTION SITE HAEMATOMA [None]
  - INJECTION SITE SWELLING [None]
  - THYROID CANCER [None]
  - INJECTION SITE REACTION [None]
  - HYPOAESTHESIA [None]
  - OEDEMA PERIPHERAL [None]
  - INFLAMMATION [None]
  - INJECTION SITE PAIN [None]
  - INJECTION SITE ERYTHEMA [None]
  - INJECTION SITE HAEMORRHAGE [None]
